FAERS Safety Report 9034303 (Version 1)
Quarter: 2013Q1

REPORT INFORMATION
  Report Type: Spontaneous
  Country: US (occurrence: US)
  Receive Date: 20130128
  Receipt Date: 20130128
  Transmission Date: 20140127
  Serious: Yes (Other)
  Sender: FDA-Public Use
  Company Number: US-AMGEN-USASP2012063918

PATIENT
  Age: 50 Year
  Sex: Female
  Weight: 145 kg

DRUGS (4)
  1. ENBREL [Suspect]
     Indication: RHEUMATOID ARTHRITIS
     Dosage: 25 MG, 2 TIMES/WK
     Route: 058
  2. ENBREL [Suspect]
     Indication: PSORIASIS
  3. SALSALATE [Concomitant]
     Dosage: 500 MG, UNK
  4. SUDAFED SINUS [Concomitant]
     Dosage: UNK

REACTIONS (1)
  - Surgery [Unknown]
